FAERS Safety Report 9479127 (Version 6)
Quarter: 2014Q3

REPORT INFORMATION
  Report Type: Report from Study
  Country: US (occurrence: US)
  Receive Date: 20130827
  Receipt Date: 20140706
  Transmission Date: 20150326
  Serious: Yes (Hospitalization, Other)
  Sender: FDA-Public Use
  Company Number: US-ALEXION-A201302015

PATIENT

DRUGS (1)
  1. SOLIRIS [Suspect]
     Active Substance: ECULIZUMAB
     Indication: PAROXYSMAL NOCTURNAL HAEMOGLOBINURIA
     Dosage: 900 MG, Q2W
     Route: 042
     Dates: start: 20090731

REACTIONS (12)
  - Vaginal haemorrhage [Unknown]
  - Haemoglobin decreased [Unknown]
  - Incision site haemorrhage [Unknown]
  - Pain in extremity [Unknown]
  - Exposure during pregnancy [Recovered/Resolved]
  - Fatigue [Unknown]
  - Photosensitivity reaction [Unknown]
  - Vomiting [Recovered/Resolved]
  - Headache [Recovering/Resolving]
  - Osteonecrosis [Unknown]
  - Dyspnoea [Unknown]
  - Thrombosis [Unknown]

NARRATIVE: CASE EVENT DATE: 20140328
